FAERS Safety Report 10142019 (Version 1)
Quarter: 2014Q2

REPORT INFORMATION
  Report Type: Spontaneous
  Country: US (occurrence: US)
  Receive Date: 20140429
  Receipt Date: 20140429
  Transmission Date: 20141212
  Serious: No
  Sender: FDA-Public Use
  Company Number: US-TEVA-477896USA

PATIENT
  Age: 49 Year
  Sex: Female
  Weight: 52.21 kg

DRUGS (6)
  1. ACTIQ [Suspect]
     Indication: MIGRAINE
     Route: 002
     Dates: start: 2004, end: 20140331
  2. XANAX [Concomitant]
     Indication: PANIC ATTACK
  3. XANAX [Concomitant]
     Indication: ANXIETY
  4. ADVAIR [Concomitant]
     Indication: ASTHMA
  5. ALBUTEROL [Concomitant]
     Indication: ASTHMA
  6. MAXALT-MLT [Concomitant]
     Indication: MIGRAINE

REACTIONS (3)
  - Drug withdrawal syndrome [Recovered/Resolved]
  - Off label use [Unknown]
  - Dyspnoea [Recovered/Resolved]
